FAERS Safety Report 9657251 (Version 1)
Quarter: 2013Q4

REPORT INFORMATION
  Report Type: Spontaneous
  Country: FR (occurrence: FR)
  Receive Date: 20131030
  Receipt Date: 20131030
  Transmission Date: 20140711
  Serious: Yes (Death, Other)
  Sender: FDA-Public Use
  Company Number: FR-VERTEX PHARMACEUTICALS INC-2013-010757

PATIENT
  Sex: 0

DRUGS (1)
  1. INCIVO [Suspect]
     Indication: HEPATITIS C
     Route: 065

REACTIONS (6)
  - Death [Fatal]
  - Infection [Fatal]
  - Adverse drug reaction [Unknown]
  - Viral load increased [Unknown]
  - Drug ineffective [Unknown]
  - Off label use [Unknown]
